FAERS Safety Report 25049073 (Version 5)
Quarter: 2025Q2

REPORT INFORMATION
  Report Type: Spontaneous
  Country: CN (occurrence: CN)
  Receive Date: 20250307
  Receipt Date: 20250401
  Transmission Date: 20250716
  Serious: Yes (Other)
  Sender: BAXTER
  Company Number: CN-BAXTER-2025BAX012017

PATIENT
  Age: 45 Year
  Sex: Female
  Weight: 53.5 kg

DRUGS (62)
  1. CYCLOPHOSPHAMIDE [Suspect]
     Active Substance: CYCLOPHOSPHAMIDE
     Indication: Diffuse large B-cell lymphoma
     Route: 041
     Dates: start: 20240703, end: 20240703
  2. CYCLOPHOSPHAMIDE [Suspect]
     Active Substance: CYCLOPHOSPHAMIDE
     Route: 041
     Dates: start: 20240723, end: 20240723
  3. CYCLOPHOSPHAMIDE [Suspect]
     Active Substance: CYCLOPHOSPHAMIDE
     Route: 041
     Dates: start: 20240813, end: 20240813
  4. CYCLOPHOSPHAMIDE [Suspect]
     Active Substance: CYCLOPHOSPHAMIDE
     Route: 041
     Dates: start: 20240903, end: 20240903
  5. CYCLOPHOSPHAMIDE [Suspect]
     Active Substance: CYCLOPHOSPHAMIDE
     Route: 041
     Dates: start: 20240929, end: 20240929
  6. CYCLOPHOSPHAMIDE [Suspect]
     Active Substance: CYCLOPHOSPHAMIDE
     Route: 041
     Dates: start: 20241022, end: 20241022
  7. DOXORUBICIN [Suspect]
     Active Substance: DOXORUBICIN
     Indication: Diffuse large B-cell lymphoma
     Route: 041
     Dates: start: 20240703, end: 20240703
  8. DOXORUBICIN [Suspect]
     Active Substance: DOXORUBICIN
     Route: 041
     Dates: start: 20240723, end: 20240723
  9. DOXORUBICIN [Suspect]
     Active Substance: DOXORUBICIN
     Route: 041
     Dates: start: 20240813, end: 20240813
  10. DOXORUBICIN [Suspect]
     Active Substance: DOXORUBICIN
     Route: 041
     Dates: start: 20240903, end: 20240903
  11. DOXORUBICIN [Suspect]
     Active Substance: DOXORUBICIN
     Route: 041
     Dates: start: 20240929, end: 20240929
  12. DOXORUBICIN [Suspect]
     Active Substance: DOXORUBICIN
     Route: 041
     Dates: start: 20241022, end: 20241022
  13. VINCRISTINE [Suspect]
     Active Substance: VINCRISTINE
     Indication: Diffuse large B-cell lymphoma
     Route: 041
     Dates: start: 20240703, end: 20240703
  14. VINCRISTINE [Suspect]
     Active Substance: VINCRISTINE
     Route: 041
     Dates: start: 20240723, end: 20240723
  15. VINCRISTINE [Suspect]
     Active Substance: VINCRISTINE
     Route: 041
     Dates: start: 20240813, end: 20240813
  16. VINCRISTINE [Suspect]
     Active Substance: VINCRISTINE
     Route: 041
     Dates: start: 20240903, end: 20240903
  17. VINCRISTINE [Suspect]
     Active Substance: VINCRISTINE
     Route: 041
     Dates: start: 20240929, end: 20240929
  18. VINCRISTINE [Suspect]
     Active Substance: VINCRISTINE
     Route: 041
     Dates: start: 20241022, end: 20241022
  19. RITUXIMAB [Suspect]
     Active Substance: RITUXIMAB
     Indication: Diffuse large B-cell lymphoma
     Route: 041
     Dates: start: 20240702, end: 20240702
  20. RITUXIMAB [Suspect]
     Active Substance: RITUXIMAB
     Route: 041
     Dates: start: 20240723, end: 20240723
  21. RITUXIMAB [Suspect]
     Active Substance: RITUXIMAB
     Route: 041
     Dates: start: 20240813, end: 20240813
  22. RITUXIMAB [Suspect]
     Active Substance: RITUXIMAB
     Route: 041
     Dates: start: 20240903, end: 20240903
  23. RITUXIMAB [Suspect]
     Active Substance: RITUXIMAB
     Route: 041
     Dates: start: 20240929, end: 20240929
  24. RITUXIMAB [Suspect]
     Active Substance: RITUXIMAB
     Route: 041
     Dates: start: 20241022, end: 20241022
  25. RITUXIMAB [Suspect]
     Active Substance: RITUXIMAB
     Route: 041
     Dates: start: 20241112, end: 20241112
  26. RITUXIMAB [Suspect]
     Active Substance: RITUXIMAB
     Route: 041
     Dates: start: 20241203, end: 20241203
  27. RITUXIMAB [Suspect]
     Active Substance: RITUXIMAB
     Route: 065
  28. RITUXIMAB [Suspect]
     Active Substance: RITUXIMAB
     Route: 065
  29. PREDNISONE ACETATE [Suspect]
     Active Substance: PREDNISONE ACETATE
     Indication: Diffuse large B-cell lymphoma
     Route: 048
     Dates: start: 20240702, end: 20240706
  30. PREDNISONE ACETATE [Suspect]
     Active Substance: PREDNISONE ACETATE
     Route: 048
     Dates: start: 20240723, end: 20240727
  31. PREDNISONE ACETATE [Suspect]
     Active Substance: PREDNISONE ACETATE
     Route: 048
     Dates: start: 20240813, end: 20240817
  32. PREDNISONE ACETATE [Suspect]
     Active Substance: PREDNISONE ACETATE
     Route: 048
     Dates: start: 20240903, end: 20240907
  33. PREDNISONE ACETATE [Suspect]
     Active Substance: PREDNISONE ACETATE
     Route: 048
     Dates: start: 20240929, end: 20241003
  34. PREDNISONE ACETATE [Suspect]
     Active Substance: PREDNISONE ACETATE
     Route: 048
     Dates: start: 20241022, end: 20241026
  35. ENTECAVIR [Concomitant]
     Active Substance: ENTECAVIR
     Indication: Antiviral prophylaxis
     Route: 048
     Dates: start: 20240704
  36. AMBROXOL HYDROCHLORIDE [Concomitant]
     Active Substance: AMBROXOL HYDROCHLORIDE
     Indication: Prophylaxis
     Route: 048
     Dates: start: 20250215, end: 20250218
  37. AMBROXOL HYDROCHLORIDE [Concomitant]
     Active Substance: AMBROXOL HYDROCHLORIDE
     Route: 048
     Dates: start: 20250224, end: 20250302
  38. BUDESONIDE [Concomitant]
     Active Substance: BUDESONIDE
     Indication: Prophylaxis
     Dates: start: 20250215, end: 20250218
  39. BUDESONIDE [Concomitant]
     Active Substance: BUDESONIDE
     Dates: start: 20250220, end: 20250224
  40. LOPERAMIDE HYDROCHLORIDE [Concomitant]
     Active Substance: LOPERAMIDE HYDROCHLORIDE
     Indication: Prophylaxis against diarrhoea
     Route: 048
     Dates: start: 20250216, end: 20250216
  41. MONTMORILLONITE [Concomitant]
     Active Substance: MONTMORILLONITE
     Indication: Prophylaxis against diarrhoea
     Route: 048
     Dates: start: 20250216, end: 20250216
  42. MONTMORILLONITE [Concomitant]
     Active Substance: MONTMORILLONITE
     Route: 048
     Dates: start: 20241215, end: 20250213
  43. CEFUROXIME SODIUM [Concomitant]
     Active Substance: CEFUROXIME SODIUM
     Indication: Infection prophylaxis
     Route: 041
     Dates: start: 20250218, end: 20250218
  44. CEFUROXIME SODIUM [Concomitant]
     Active Substance: CEFUROXIME SODIUM
     Route: 041
     Dates: start: 20250219, end: 20250224
  45. DIAZEPAM [Concomitant]
     Active Substance: DIAZEPAM
     Indication: Anaesthesia procedure
     Route: 048
     Dates: start: 20250218, end: 20250218
  46. CIPEPOFOL [Concomitant]
     Active Substance: CIPEPOFOL
     Indication: Anaesthesia procedure
     Route: 042
     Dates: start: 20250218, end: 20250218
  47. Glucose Nacl [Concomitant]
     Indication: Nutritional supplementation
     Route: 041
     Dates: start: 20250219, end: 20250219
  48. ESOMEPRAZOLE SODIUM [Concomitant]
     Active Substance: ESOMEPRAZOLE SODIUM
     Indication: Prophylaxis
     Route: 041
     Dates: start: 20250219, end: 20250224
  49. PARECOXIB SODIUM [Concomitant]
     Active Substance: PARECOXIB SODIUM
     Indication: Procedural pain
     Route: 042
     Dates: start: 20250219, end: 20250224
  50. CARBAZOCHROME SODIUM SULFONATE [Concomitant]
     Active Substance: CARBAZOCHROME SODIUM SULFONATE
     Indication: Haemostasis
     Route: 041
     Dates: start: 20250219, end: 20250220
  51. PALONOSETRON HYDROCHLORIDE [Concomitant]
     Active Substance: PALONOSETRON HYDROCHLORIDE
     Indication: Prophylaxis of nausea and vomiting
     Route: 041
     Dates: start: 20250219, end: 20250219
  52. Compound chlorhexidine gargle [Concomitant]
     Indication: Infection prophylaxis
     Route: 050
     Dates: start: 20250219, end: 20250219
  53. CALCIUM CHLORIDE\POTASSIUM CHLORIDE\SODIUM CHLORIDE [Concomitant]
     Active Substance: CALCIUM CHLORIDE\POTASSIUM CHLORIDE\SODIUM CHLORIDE
     Indication: Nutritional supplementation
     Route: 041
     Dates: start: 20250220, end: 20250220
  54. PREGABALIN [Concomitant]
     Active Substance: PREGABALIN
     Indication: Procedural pain
     Route: 048
     Dates: start: 20250220, end: 20250224
  55. PREGABALIN [Concomitant]
     Active Substance: PREGABALIN
     Route: 048
     Dates: start: 20250224, end: 20250305
  56. LACTULOSE [Concomitant]
     Active Substance: LACTULOSE
     Indication: Constipation
     Route: 048
     Dates: start: 20250220, end: 20250220
  57. ALBUMIN HUMAN [Concomitant]
     Active Substance: ALBUMIN HUMAN
     Indication: Hypoalbuminaemia
     Route: 041
     Dates: start: 20250220, end: 20250224
  58. FUROSEMIDE [Concomitant]
     Active Substance: FUROSEMIDE
     Indication: Prophylaxis
     Route: 042
     Dates: start: 20250221, end: 20250221
  59. LEVOFLOXACIN [Concomitant]
     Active Substance: LEVOFLOXACIN
     Indication: Infection prophylaxis
     Route: 048
     Dates: start: 20250224, end: 20250227
  60. CEFACLOR [Concomitant]
     Active Substance: CEFACLOR
     Indication: Infection prophylaxis
     Route: 048
     Dates: start: 20250224, end: 20250227
  61. Codeine phosphate and platycodon [Concomitant]
     Indication: Prophylaxis
     Route: 048
     Dates: start: 20250224, end: 20250305
  62. Ma ying long she xiang [Concomitant]
     Indication: Haemorrhoids
     Route: 065
     Dates: start: 20241017

REACTIONS (1)
  - Lung adenocarcinoma [Recovering/Resolving]

NARRATIVE: CASE EVENT DATE: 20250219
